FAERS Safety Report 12517563 (Version 1)
Quarter: 2016Q2

REPORT INFORMATION
  Report Type: Spontaneous
  Country: PT (occurrence: PT)
  Receive Date: 20160630
  Receipt Date: 20160630
  Transmission Date: 20160815
  Serious: Yes (Other)
  Sender: FDA-Public Use
  Company Number: PT-ACTAVIS-2016-13956

PATIENT
  Sex: Female
  Weight: 56 kg

DRUGS (3)
  1. LETROZOL ACTAVIS [Suspect]
     Active Substance: LETROZOLE
     Indication: BREAST NEOPLASM
     Dosage: 2.5 MG, DAILY (VALIDITY: 28-02-2020)
     Route: 048
     Dates: start: 20141023
  2. LETROZOL ACCORD [Concomitant]
     Active Substance: LETROZOLE
     Indication: BREAST NEOPLASM
     Dosage: 1 DF, DAILY
     Route: 048
  3. VIGANTOL                           /00318501/ [Concomitant]
     Indication: PRODUCT USED FOR UNKNOWN INDICATION
     Dosage: 1 DF, DAILY
     Route: 048
     Dates: start: 20160506

REACTIONS (2)
  - Bone pain [Unknown]
  - Product substitution issue [Unknown]
